FAERS Safety Report 20020239 (Version 11)
Quarter: 2025Q1

REPORT INFORMATION
  Report Type: Report from Study
  Country: US (occurrence: US)
  Receive Date: 20211101
  Receipt Date: 20250131
  Transmission Date: 20250408
  Serious: Yes (Hospitalization, Other)
  Sender: TAKEDA
  Company Number: US-SHIRE-US202006491

PATIENT
  Sex: Female
  Weight: 85 kg

DRUGS (26)
  1. LANADELUMAB [Suspect]
     Active Substance: LANADELUMAB
     Indication: Hereditary angioedema
     Dosage: 300 MILLIGRAM, Q2WEEKS
     Dates: start: 20190204
  2. LANADELUMAB [Suspect]
     Active Substance: LANADELUMAB
     Indication: Immune system disorder
     Dosage: 300 MILLIGRAM, Q2WEEKS
     Dates: start: 20190222
  3. LANADELUMAB [Suspect]
     Active Substance: LANADELUMAB
     Dosage: 300 MILLIGRAM, Q2WEEKS
     Dates: start: 20190223
  4. MIDODRINE HYDROCHLORIDE [Concomitant]
     Active Substance: MIDODRINE HYDROCHLORIDE
  5. BREO ELLIPTA [Concomitant]
     Active Substance: FLUTICASONE FUROATE\VILANTEROL TRIFENATATE
  6. SYNTHROID [Concomitant]
     Active Substance: LEVOTHYROXINE SODIUM
  7. ICATIBANT [Concomitant]
     Active Substance: ICATIBANT ACETATE
  8. CYANOCOBALAMIN [Concomitant]
     Active Substance: CYANOCOBALAMIN
  9. CALCIUM\CHOLECALCIFEROL [Concomitant]
     Active Substance: CALCIUM\CHOLECALCIFEROL
  10. LASIX [Concomitant]
     Active Substance: FUROSEMIDE
  11. PANTOPRAZOLE SODIUM [Concomitant]
     Active Substance: PANTOPRAZOLE SODIUM
  12. POTASSIUM [Concomitant]
     Active Substance: POTASSIUM
  13. EPIPEN [Concomitant]
     Active Substance: EPINEPHRINE
  14. PROAIR HFA [Concomitant]
     Active Substance: ALBUTEROL SULFATE
  15. GABAPENTIN [Concomitant]
     Active Substance: GABAPENTIN
  16. OXYGEN [Concomitant]
     Active Substance: OXYGEN
  17. LINZESS [Concomitant]
     Active Substance: LINACLOTIDE
  18. BENADRYL [Concomitant]
     Active Substance: DIPHENHYDRAMINE HYDROCHLORIDE
  19. ACETAMINOPHEN\CODEINE PHOSPHATE [Concomitant]
     Active Substance: ACETAMINOPHEN\CODEINE PHOSPHATE
  20. IBUPROFEN [Concomitant]
     Active Substance: IBUPROFEN
  21. KEPPRA [Concomitant]
     Active Substance: LEVETIRACETAM
  22. ZANTAC [Concomitant]
     Active Substance: RANITIDINE HYDROCHLORIDE
  23. PHENERGAN [Concomitant]
     Active Substance: PROMETHAZINE HYDROCHLORIDE
  24. ERRIN [Concomitant]
     Active Substance: NORETHINDRONE
  25. METHYLPREDNISOLONE [Concomitant]
     Active Substance: METHYLPREDNISOLONE
  26. MIRALAX [Concomitant]
     Active Substance: POLYETHYLENE GLYCOL 3350

REACTIONS (14)
  - COVID-19 pneumonia [Unknown]
  - Head injury [Unknown]
  - Contusion [Unknown]
  - Fall [Unknown]
  - Blood potassium decreased [Unknown]
  - Blood pressure decreased [Unknown]
  - Oxygen saturation decreased [Unknown]
  - Cerebrovascular accident [Unknown]
  - Seizure [Recovering/Resolving]
  - Hereditary angioedema [Not Recovered/Not Resolved]
  - Pain [Unknown]
  - Heart rate decreased [Unknown]
  - Allergy to plants [Unknown]
  - Multiple allergies [Unknown]
